FAERS Safety Report 13515349 (Version 1)
Quarter: 2017Q2

REPORT INFORMATION
  Report Type: Spontaneous
  Country: US (occurrence: US)
  Receive Date: 20170504
  Receipt Date: 20170504
  Transmission Date: 20170830
  Serious: No
  Sender: FDA-Public Use
  Company Number: US-BAUSCH-BL-2016-007723

PATIENT
  Age: 50 Year
  Sex: Female
  Weight: 61.74 kg

DRUGS (2)
  1. RETINOL COMPLEX [Concomitant]
     Indication: SKIN WRINKLING
     Route: 061
     Dates: start: 20160226
  2. ZYCLARA [Suspect]
     Active Substance: IMIQUIMOD
     Indication: ACTINIC KERATOSIS
     Dosage: APPLIED ONCE DAILY IN THE EVENING TO THE UPPER CHEST AREA
     Route: 061
     Dates: start: 20160226, end: 20160328

REACTIONS (2)
  - Cataract [Unknown]
  - Vision blurred [Not Recovered/Not Resolved]

NARRATIVE: CASE EVENT DATE: 20160324
